FAERS Safety Report 9644126 (Version 1)
Quarter: 2013Q4

REPORT INFORMATION
  Report Type: Report from Study
  Country: US (occurrence: US)
  Receive Date: 20131024
  Receipt Date: 20131024
  Transmission Date: 20140711
  Serious: Yes (Hospitalization)
  Sender: FDA-Public Use
  Company Number: US-ABBVIE-13P-163-1158724-00

PATIENT
  Sex: Female

DRUGS (11)
  1. HUMIRA [Suspect]
     Indication: CROHN^S DISEASE
     Dates: start: 200801
  2. APRISO [Concomitant]
     Indication: CROHN^S DISEASE
     Dosage: 4 TABS DAILY
  3. ASPIRIN [Concomitant]
     Indication: PRODUCT USED FOR UNKNOWN INDICATION
     Dosage: 2 TABS DAILY
  4. MOBIC [Concomitant]
     Indication: INFLAMMATION
     Dosage: 15MG DAILY
  5. OMEPRAZOLE [Concomitant]
     Indication: GASTROOESOPHAGEAL REFLUX DISEASE
     Dosage: 40MG DAILY
  6. OXYCODONE/APAP [Concomitant]
     Indication: PAIN
     Dosage: 5/325 2 TABS EVERY 4-6 HOURS
  7. LIPITOR [Concomitant]
     Indication: BLOOD CHOLESTEROL INCREASED
     Dosage: 10MG DAILY
  8. QUINAPRIL/HYDROCHLOORTHIAZIDE HEXAL [Concomitant]
     Indication: HYPERTENSION
  9. VITAMIN D NOS [Concomitant]
     Indication: VITAMIN D DEFICIENCY
     Dosage: 2 TABS DAILY
  10. LIPITOR [Concomitant]
     Indication: HYPERTENSION
     Dosage: 10MG DAILY
  11. EFFEXOR [Concomitant]
     Indication: DEPRESSION
     Dosage: INCREASED DOSAGE TO 75MG DAILY

REACTIONS (6)
  - Diverticular perforation [Not Recovered/Not Resolved]
  - Enterovesical fistula [Unknown]
  - Colonic abscess [Unknown]
  - Hypertension [Unknown]
  - Blood cholesterol increased [Unknown]
  - Vitamin D deficiency [Unknown]
